FAERS Safety Report 8556762-5 (Version None)
Quarter: 2012Q3

REPORT INFORMATION
  Report Type: 
  Country: None (occurrence: None)
  Receive Date: 20120801
  Receipt Date: 20120711
  Transmission Date: 20120928
  Serious: No
  Sender: FDA-Public Use
  Company Number: US-ASTRAZENECA-2012SE48213

PATIENT
  Age: 22 Year
  Sex: Male

DRUGS (4)
  1. NEURONTIN [Concomitant]
  2. SEROQUEL XR [Suspect]
     Indication: ANXIETY
     Route: 048
  3. SEROQUEL XR [Suspect]
     Indication: SLEEP DISORDER
     Route: 048
  4. CYMBALTA [Concomitant]

REACTIONS (3)
  - OFF LABEL USE [None]
  - ANXIETY [None]
  - DEPRESSION [None]
